FAERS Safety Report 17511269 (Version 1)
Quarter: 2020Q1

REPORT INFORMATION
  Report Type: Spontaneous
  Country: CA (occurrence: CA)
  Receive Date: 20200306
  Receipt Date: 20200306
  Transmission Date: 20200409
  Serious: Yes (Other)
  Sender: FDA-Public Use
  Company Number: CA-JNJFOC-20200240296

PATIENT
  Sex: Male

DRUGS (6)
  1. ENBREL [Suspect]
     Active Substance: ETANERCEPT
     Indication: PSORIATIC ARTHROPATHY
     Route: 065
  2. NAPROXEN. [Concomitant]
     Active Substance: NAPROXEN
     Indication: PSORIATIC ARTHROPATHY
     Route: 048
  3. HUMIRA [Suspect]
     Active Substance: ADALIMUMAB
     Route: 058
  4. HUMIRA [Suspect]
     Active Substance: ADALIMUMAB
     Indication: PSORIATIC ARTHROPATHY
     Route: 058
  5. ACETAMINOPHEN W/OXYCODONE [Concomitant]
     Active Substance: ACETAMINOPHEN\OXYCODONE HYDROCHLORIDE
     Indication: PAIN
     Route: 048
  6. STELARA [Suspect]
     Active Substance: USTEKINUMAB
     Indication: PSORIATIC ARTHROPATHY
     Route: 058

REACTIONS (18)
  - Vitamin B12 increased [Unknown]
  - Diverticulum [Unknown]
  - Prothrombin time abnormal [Unknown]
  - Iron deficiency anaemia [Unknown]
  - Intentional product misuse [Unknown]
  - Red blood cell count decreased [Unknown]
  - Alanine aminotransferase abnormal [Unknown]
  - Arthritis [Unknown]
  - Psoriasis [Unknown]
  - Gastritis [Unknown]
  - Gamma-glutamyltransferase abnormal [Unknown]
  - Mean cell volume decreased [Unknown]
  - Gastric ulcer [Unknown]
  - Bacteraemia [Unknown]
  - Anaemia of chronic disease [Unknown]
  - Diverticulum intestinal [Unknown]
  - Antinuclear antibody positive [Unknown]
  - Blood folate increased [Unknown]
